FAERS Safety Report 14347790 (Version 1)
Quarter: 2018Q1

REPORT INFORMATION
  Report Type: Spontaneous
  Country: FR (occurrence: FR)
  Receive Date: 20180103
  Receipt Date: 20180103
  Transmission Date: 20180509
  Serious: Yes (Death)
  Sender: FDA-Public Use
  Company Number: FR-SA-2017SA263871

PATIENT
  Age: 85 Year
  Sex: Female
  Weight: 75 kg

DRUGS (16)
  1. METEOSPASMYL [Suspect]
     Active Substance: ALVERINE CITRATE\DIMETHICONE
     Indication: ABDOMINAL PAIN
     Route: 048
     Dates: start: 20171025, end: 201711
  2. ZOLPIDEM [Suspect]
     Active Substance: ZOLPIDEM\ZOLPIDEM TARTRATE
     Route: 048
     Dates: start: 20171019, end: 201711
  3. AUGMENTIN [Suspect]
     Active Substance: AMOXICILLIN\CLAVULANATE POTASSIUM
     Indication: INFECTION
     Route: 048
     Dates: start: 20171025, end: 20171027
  4. EBASTINE [Concomitant]
     Active Substance: EBASTINE
  5. OXYCODONE [Concomitant]
     Active Substance: OXYCODONE
  6. RIVOTRIL [Concomitant]
     Active Substance: CLONAZEPAM
  7. LAMICTAL [Suspect]
     Active Substance: LAMOTRIGINE
     Indication: NEUROPATHY PERIPHERAL
     Route: 048
     Dates: start: 20170823, end: 20171103
  8. FUNGIZONE [Concomitant]
     Active Substance: AMPHOTERICIN B
  9. FUROSEMIDE. [Concomitant]
     Active Substance: FUROSEMIDE
  10. FLAGYL [Concomitant]
     Active Substance: METRONIDAZOLE\METRONIDAZOLE HYDROCHLORIDE
  11. ZITHROMAX [Concomitant]
     Active Substance: AZITHROMYCIN DIHYDRATE
  12. LANZOR [Concomitant]
     Active Substance: LANSOPRAZOLE
  13. DILTIAZEM. [Concomitant]
     Active Substance: DILTIAZEM
  14. BRINTELLIX [Concomitant]
     Active Substance: VORTIOXETINE HYDROBROMIDE
  15. PREDNISONE. [Concomitant]
     Active Substance: PREDNISONE
  16. ADROVANCE [Concomitant]
     Active Substance: ALENDRONATE SODIUM\CHOLECALCIFEROL

REACTIONS (1)
  - Toxic epidermal necrolysis [Fatal]

NARRATIVE: CASE EVENT DATE: 20171027
